FAERS Safety Report 19505758 (Version 2)
Quarter: 2021Q3

REPORT INFORMATION
  Report Type: Spontaneous
  Country: US (occurrence: US)
  Receive Date: 20210708
  Receipt Date: 20210726
  Transmission Date: 20211014
  Serious: Yes (Life-Threatening, Hospitalization, Other)
  Sender: FDA-Public Use
  Company Number: US-AUROBINDO-AUR-APL-2021-028735

PATIENT
  Age: 22 Year
  Sex: Male

DRUGS (1)
  1. LOPERAMIDE [Suspect]
     Active Substance: LOPERAMIDE
     Indication: PRODUCT USED FOR UNKNOWN INDICATION
     Dosage: UNK (SUPRATHERAPEUTIC) (APPROXIMATELY 600MG, 23 TIMES WEEKLY)
     Route: 048

REACTIONS (11)
  - Brugada syndrome [Unknown]
  - Drug level above therapeutic [Unknown]
  - Ventricular tachycardia [Unknown]
  - Cardiotoxicity [Unknown]
  - Overdose [Unknown]
  - Drug abuse [Unknown]
  - Intentional product misuse [Unknown]
  - Loss of consciousness [Recovered/Resolved]
  - Pulse absent [Unknown]
  - Cardiac arrest [Unknown]
  - Torsade de pointes [Unknown]
